FAERS Safety Report 5698158-X (Version None)
Quarter: 2008Q2

REPORT INFORMATION
  Report Type: 
  Country: None (occurrence: None)
  Receive Date: 20080403
  Receipt Date: 20080321
  Transmission Date: 20081010
  Serious: Yes (Death, Life-Threatening)
  Sender: FDA-Public Use
  Company Number: 000362

PATIENT
  Age: 30 Year
  Sex: Male

DRUGS (3)
  1. BUSULFEX [Suspect]
     Indication: STEM CELL TRANSPLANT
     Dosage: INTRAVENOUS
     Route: 042
     Dates: start: 20070413, end: 20070416
  2. CYCLOSPORINE [Suspect]
  3. NEUPOGEN [Concomitant]

REACTIONS (7)
  - ANAEMIA [None]
  - ASCITES [None]
  - BONE MARROW TRANSPLANT [None]
  - PLATELET COUNT DECREASED [None]
  - RENAL IMPAIRMENT [None]
  - THROMBOTIC MICROANGIOPATHY [None]
  - WEIGHT INCREASED [None]
